FAERS Safety Report 8522121 (Version 3)
Quarter: 2013Q4

REPORT INFORMATION
  Report Type: Spontaneous
  Country: US (occurrence: US)
  Receive Date: 20120419
  Receipt Date: 20131018
  Transmission Date: 20140711
  Serious: Yes (Hospitalization, Other)
  Sender: FDA-Public Use
  Company Number: US-US-EMD SERONO, INC.-7125682

PATIENT
  Sex: Female

DRUGS (5)
  1. REBIF [Suspect]
     Indication: MULTIPLE SCLEROSIS
     Route: 058
     Dates: start: 20090828
  2. POTASSIUM                          /00031402/ [Concomitant]
     Indication: PRODUCT USED FOR UNKNOWN INDICATION
  3. FUROSEMIDE                         /00032602/ [Concomitant]
     Indication: SWELLING
  4. OXYMORPHONE [Concomitant]
     Indication: PAIN
  5. OXCARBAZEPINE [Concomitant]
     Indication: CONVULSION
     Dates: start: 2007

REACTIONS (15)
  - Sepsis [Unknown]
  - Cyst [Recovered/Resolved]
  - Benign neoplasm [Unknown]
  - Skin fissures [Unknown]
  - Nodule [Unknown]
  - Visual impairment [Not Recovered/Not Resolved]
  - Blood pressure increased [Recovered/Resolved]
  - Nausea [Unknown]
  - Nasopharyngitis [Unknown]
  - Muscular weakness [Unknown]
  - Malaise [Unknown]
  - White blood cell count decreased [Unknown]
  - Fatigue [Unknown]
  - Arthralgia [Unknown]
  - Injection site pain [Unknown]
